FAERS Safety Report 6750043-8 (Version None)
Quarter: 2010Q2

REPORT INFORMATION
  Report Type: 
  Country: None (occurrence: None)
  Receive Date: 20100601
  Receipt Date: 20100519
  Transmission Date: 20101027
  Serious: Yes (Hospitalization)
  Sender: FDA-Public Use
  Company Number: FR-PFIZER INC-2010067944

PATIENT
  Age: 83 Year
  Sex: Male

DRUGS (5)
  1. ATARAX [Suspect]
     Dosage: 50 MG DAILY
     Route: 048
     Dates: start: 20100324, end: 20100504
  2. LASIX [Suspect]
     Dosage: 20 MG, DAILY
     Route: 048
     Dates: start: 20100324, end: 20100505
  3. KARDEGIC [Suspect]
     Dosage: 75 MG, DAILY
     Route: 048
     Dates: start: 20100324, end: 20100504
  4. ATENOLOL [Concomitant]
     Dosage: UNK
     Dates: start: 20100324
  5. CALCIPARINE [Concomitant]
     Dosage: UNK
     Dates: start: 20100324, end: 20100420

REACTIONS (1)
  - THROMBOCYTOPENIA [None]
